FAERS Safety Report 8601860-0 (Version None)
Quarter: 2012Q3

REPORT INFORMATION
  Report Type: 
  Country: None (occurrence: None)
  Receive Date: 20120817
  Receipt Date: 20120518
  Transmission Date: 20120928
  Serious: Yes (Hospitalization)
  Sender: FDA-Public Use
  Company Number: US-BRISTOL-MYERS SQUIBB COMPANY-16575359

PATIENT
  Age: 68 Year
  Sex: Female

DRUGS (7)
  1. POTASSIUM CHLORIDE [Concomitant]
  2. CITALOPRAM HYDROBROMIDE [Concomitant]
  3. SPRYCEL [Suspect]
     Route: 048
     Dates: start: 20091001, end: 20120401
  4. ATENOLOL [Concomitant]
  5. DIGOXIN [Concomitant]
  6. COUMADIN [Concomitant]
  7. OMEPRAZOLE [Concomitant]

REACTIONS (1)
  - PLEURAL EFFUSION [None]
